FAERS Safety Report 10924092 (Version 1)
Quarter: 2015Q1

REPORT INFORMATION
  Report Type: Spontaneous
  Country: GB (occurrence: GB)
  Receive Date: 20150318
  Receipt Date: 20150318
  Transmission Date: 20150721
  Serious: Yes (Other)
  Sender: FDA-Public Use
  Company Number: GB-AUROBINDO-AUR-APL-2015-02155

PATIENT
  Age: 28 Year
  Sex: Female

DRUGS (1)
  1. SERTRALINE 50MG [Suspect]
     Active Substance: SERTRALINE HYDROCHLORIDE
     Indication: PRODUCT USED FOR UNKNOWN INDICATION
     Dosage: 50 MG, UNK
     Route: 065

REACTIONS (7)
  - Confusional state [Unknown]
  - Social avoidant behaviour [Unknown]
  - Alcoholism [Unknown]
  - Alcohol intolerance [Unknown]
  - Loss of employment [Unknown]
  - Loss of consciousness [Unknown]
  - Anxiety [Unknown]
